FAERS Safety Report 16856379 (Version 2)
Quarter: 2019Q4

REPORT INFORMATION
  Report Type: Spontaneous
  Country: JP (occurrence: JP)
  Receive Date: 20190926
  Receipt Date: 20191106
  Transmission Date: 20200122
  Serious: Yes (Death, Other)
  Sender: FDA-Public Use
  Company Number: JP-BAYER-2019-171355

PATIENT
  Age: 46 Year
  Sex: Female

DRUGS (1)
  1. NEXAVAR [Suspect]
     Active Substance: SORAFENIB
     Indication: FOLLICULAR THYROID CANCER
     Dosage: DAILY DOSE 400 MG, IN TWO DIVIDED DOSES
     Route: 048
     Dates: start: 20160830, end: 20170129

REACTIONS (4)
  - Thyroglobulin increased [None]
  - Malignant pleural effusion [Not Recovered/Not Resolved]
  - Follicular thyroid cancer [Fatal]
  - General physical health deterioration [Not Recovered/Not Resolved]

NARRATIVE: CASE EVENT DATE: 20161207
